FAERS Safety Report 11169666 (Version 1)
Quarter: 2015Q2

REPORT INFORMATION
  Report Type: Report from Study
  Country: KR (occurrence: KR)
  Receive Date: 20150605
  Receipt Date: 20150605
  Transmission Date: 20150821
  Serious: No
  Sender: FDA-Public Use
  Company Number: PHHY2015KR061552

PATIENT
  Age: 56 Year
  Sex: Female

DRUGS (5)
  1. AMN107 [Suspect]
     Active Substance: NILOTINIB
     Indication: CHRONIC MYELOID LEUKAEMIA
     Dosage: 400 MG, QD
     Route: 048
     Dates: start: 20140529, end: 20140625
  2. RANITIDINE [Concomitant]
     Active Substance: RANITIDINE\RANITIDINE HYDROCHLORIDE
     Indication: ABDOMINAL PAIN UPPER
     Dosage: 1 DF,
     Route: 048
     Dates: start: 20140529, end: 20140925
  3. HYALURONATE NA [Concomitant]
     Indication: BLEPHARITIS
     Dosage: 0.4 ML,
     Route: 047
     Dates: start: 20121128, end: 20140728
  4. OFAL//OFLOXACIN [Concomitant]
     Indication: BLEPHARITIS
     Dosage: 2 DF,
     Route: 047
     Dates: start: 20121128, end: 20140728
  5. AMN107 [Suspect]
     Active Substance: NILOTINIB
     Dosage: 600 MG, QD
     Route: 048
     Dates: start: 20140626

REACTIONS (3)
  - Arthralgia [Unknown]
  - Rash [Unknown]
  - Alopecia [Unknown]

NARRATIVE: CASE EVENT DATE: 20140925
